FAERS Safety Report 13707240 (Version 1)
Quarter: 2017Q2

REPORT INFORMATION
  Report Type: Spontaneous
  Country: DK (occurrence: DK)
  Receive Date: 20170630
  Receipt Date: 20170630
  Transmission Date: 20170830
  Serious: Yes (Hospitalization)
  Sender: FDA-Public Use
  Company Number: DK-SEPTODONT-201502468

PATIENT
  Age: 51 Year
  Sex: Male

DRUGS (1)
  1. SCANDONEST PLAIN [Suspect]
     Active Substance: MEPIVACAINE HYDROCHLORIDE
     Indication: DENTAL CARE
     Route: 004
     Dates: start: 20110822, end: 20110822

REACTIONS (11)
  - Generalised tonic-clonic seizure [Recovered/Resolved]
  - Dysarthria [Unknown]
  - Hemiplegia [Recovering/Resolving]
  - Speech disorder [Unknown]
  - Cerebral haemorrhage [Recovered/Resolved with Sequelae]
  - Consciousness fluctuating [Recovered/Resolved]
  - Neurologic neglect syndrome [Recovering/Resolving]
  - Headache [Unknown]
  - Vomiting [Recovered/Resolved]
  - Facial paralysis [Recovering/Resolving]
  - Cognitive disorder [Not Recovered/Not Resolved]

NARRATIVE: CASE EVENT DATE: 20110822
